FAERS Safety Report 15711419 (Version 1)
Quarter: 2018Q4

REPORT INFORMATION
  Report Type: Spontaneous
  Country: AU (occurrence: AU)
  Receive Date: 20181211
  Receipt Date: 20181211
  Transmission Date: 20190205
  Serious: Yes (Other)
  Sender: FDA-Public Use
  Company Number: AU-UCBSA-2018053584

PATIENT
  Age: 38 Year
  Sex: Female

DRUGS (4)
  1. EPILIM [Concomitant]
     Active Substance: VALPROATE SODIUM
     Indication: PRODUCT USED FOR UNKNOWN INDICATION
     Dosage: UNK
     Dates: end: 201711
  2. CELEBREX [Concomitant]
     Active Substance: CELECOXIB
     Indication: BACK DISORDER
     Dosage: UNK, AS NEEDED (PRN)
  3. KEPPRA [Suspect]
     Active Substance: LEVETIRACETAM
     Indication: EPILEPSY
     Dosage: 500 MG, ONCE DAILY (QD)
     Dates: start: 201711
  4. SYMBICORT [Concomitant]
     Active Substance: BUDESONIDE\FORMOTEROL FUMARATE DIHYDRATE
     Indication: ASTHMA
     Dosage: UNK

REACTIONS (3)
  - Emotional disorder [Unknown]
  - Generalised tonic-clonic seizure [Unknown]
  - Off label use [Unknown]

NARRATIVE: CASE EVENT DATE: 20181123
